FAERS Safety Report 4426434-7 (Version None)
Quarter: 2004Q3

REPORT INFORMATION
  Report Type: 
  Country: None (occurrence: None)
  Receive Date: 20040811
  Receipt Date: 20040727
  Transmission Date: 20050211
  Serious: Yes (Death)
  Sender: FDA-Public Use
  Company Number: JP_040703830

PATIENT
  Age: 79 Year
  Sex: Female
  Weight: 70 kg

DRUGS (8)
  1. EVISTA [Suspect]
     Indication: OSTEOPOROSIS
     Dosage: 60 MG/1 DAY
     Dates: start: 20040701, end: 20040730
  2. MYONAL (EPERISONE HYDROCHLORIDE) [Concomitant]
  3. ALINAMIN F (FURSULTIAMINE) [Concomitant]
  4. KERLONE [Concomitant]
  5. HALCION [Concomitant]
  6. LOXONIN (LOXOPROFEN SODIUM) [Concomitant]
  7. ACTOS [Concomitant]
  8. EUGLUCON (GLIBENCLAMIDE) [Concomitant]

REACTIONS (5)
  - AORTIC DISSECTION [None]
  - BACK PAIN [None]
  - CARDIAC TAMPONADE [None]
  - DIABETIC VASCULAR DISORDER [None]
  - FACE OEDEMA [None]
